FAERS Safety Report 16262332 (Version 1)
Quarter: 2019Q2

REPORT INFORMATION
  Report Type: Spontaneous
  Country: US (occurrence: US)
  Receive Date: 20190501
  Receipt Date: 20190501
  Transmission Date: 20190711
  Serious: No
  Sender: FDA-Public Use
  Company Number: US-MEDIMETRIKS-2018-US-021290

PATIENT
  Age: 65 Year
  Sex: Female
  Weight: 85.73 kg

DRUGS (3)
  1. UNSPECIFIED INSULIN [Concomitant]
     Active Substance: INSULIN NOS
  2. 3 UNSPECIFIED PILLS FOR DIABETES [Concomitant]
  3. NEO-SYNALAR [Suspect]
     Active Substance: FLUOCINOLONE ACETONIDE\NEOMYCIN SULFATE
     Indication: SKIN CANCER
     Dosage: NIGHTLY
     Route: 061
     Dates: start: 201804, end: 201804

REACTIONS (4)
  - Condition aggravated [Unknown]
  - Application site swelling [Unknown]
  - Off label use [Recovered/Resolved]
  - Application site erythema [Unknown]

NARRATIVE: CASE EVENT DATE: 201804
